FAERS Safety Report 7207605-3 (Version None)
Quarter: 2011Q1

REPORT INFORMATION
  Report Type: 
  Country: None (occurrence: None)
  Receive Date: 20110103
  Receipt Date: 20101222
  Transmission Date: 20110831
  Serious: Yes (Other)
  Sender: FDA-Public Use
  Company Number: US-ELI_LILLY_AND_COMPANY-US201012005904

PATIENT
  Age: 76 Year
  Sex: Female

DRUGS (1)
  1. HUMALOG [Suspect]
     Indication: DIABETES MELLITUS
     Dosage: 10 U, OTHER
     Dates: start: 19900101

REACTIONS (5)
  - MEMORY IMPAIRMENT [None]
  - EYE OEDEMA [None]
  - RETINAL DETACHMENT [None]
  - EYE HAEMORRHAGE [None]
  - EYE DISORDER [None]
